FAERS Safety Report 11890372 (Version 2)
Quarter: 2016Q1

REPORT INFORMATION
  Report Type: Spontaneous
  Country: US (occurrence: US)
  Receive Date: 20160105
  Receipt Date: 20160111
  Transmission Date: 20160526
  Serious: No
  Sender: FDA-Public Use
  Company Number: US-ACTELION PHARMACEUTICALS US, INC.-A-US2015-128937

PATIENT
  Age: 49 Year
  Sex: Female

DRUGS (2)
  1. VELETRI [Suspect]
     Active Substance: EPOPROSTENOL
     Indication: PULMONARY ARTERIAL HYPERTENSION
     Dosage: 18 NG/KG, PER MIN
     Route: 042
     Dates: start: 20150813
  2. VIAGRA [Concomitant]
     Active Substance: SILDENAFIL CITRATE

REACTIONS (4)
  - Rash [Unknown]
  - Dermatitis contact [Recovering/Resolving]
  - Application site pruritus [Unknown]
  - Application site erythema [Unknown]
